FAERS Safety Report 23742668 (Version 6)
Quarter: 2024Q2

REPORT INFORMATION
  Report Type: Spontaneous
  Country: US (occurrence: US)
  Receive Date: 20240415
  Receipt Date: 20240513
  Transmission Date: 20240716
  Serious: No
  Sender: FDA-Public Use
  Company Number: US-PFIZER INC-202400076023

PATIENT
  Age: 14 Year
  Sex: Male
  Weight: 49.9 kg

DRUGS (2)
  1. GENOTROPIN [Suspect]
     Active Substance: SOMATROPIN
     Indication: Growth hormone deficiency
     Dosage: UNK, 1X/DAY
  2. GENOTROPIN [Suspect]
     Active Substance: SOMATROPIN
     Dosage: 2.2 MG
     Dates: start: 202402

REACTIONS (3)
  - Drug dose omission by device [Unknown]
  - Device breakage [Unknown]
  - Device mechanical issue [Unknown]
